FAERS Safety Report 7981374-1 (Version None)
Quarter: 2011Q4

REPORT INFORMATION
  Report Type: 
  Country: None (occurrence: None)
  Receive Date: 20111213
  Receipt Date: 20111201
  Transmission Date: 20120403
  Serious: Yes (Life-Threatening)
  Sender: FDA-Public Use
  Company Number: ABR_00306_2011

PATIENT
  Sex: Male

DRUGS (2)
  1. PANTOMICINA /00020904/ (PANTOMICINA ES (NOT SPECIFIED) [Suspect]
     Indication: PROPHYLAXIS
     Dosage: ORAL, (DF [1/16 OF A SACHET OF 500 MG] ORAL)
     Route: 048
  2. PANTOMICINA /00020904/ (PANTOMICINA ES (NOT SPECIFIED) [Suspect]
     Indication: TOOTH DISORDER
     Dosage: ORAL, (DF [1/16 OF A SACHET OF 500 MG] ORAL)
     Route: 048

REACTIONS (1)
  - HYPERSENSITIVITY [None]
